FAERS Safety Report 13492166 (Version 1)
Quarter: 2017Q2

REPORT INFORMATION
  Report Type: Spontaneous
  Country: US (occurrence: US)
  Receive Date: 20170427
  Receipt Date: 20170427
  Transmission Date: 20170830
  Serious: No
  Sender: FDA-Public Use
  Company Number: US-009507513-1704USA001521

PATIENT
  Age: 27 Year
  Sex: Female
  Weight: 135.15 kg

DRUGS (2)
  1. NEXPLANON [Suspect]
     Active Substance: ETONOGESTREL
     Dosage: 68MG; 1 ROD EVERY THREE YEARS, UNK
     Route: 059
     Dates: start: 20170406
  2. NEXPLANON [Suspect]
     Active Substance: ETONOGESTREL
     Indication: PRODUCT USED FOR UNKNOWN INDICATION
     Dosage: 68 MG ; 1 ROD EVERY THREE YEARS
     Route: 059
     Dates: start: 20170331

REACTIONS (3)
  - No adverse event [Unknown]
  - Overdose [Unknown]
  - Complication associated with device [Unknown]

NARRATIVE: CASE EVENT DATE: 20170402
